FAERS Safety Report 5935775-3 (Version None)
Quarter: 2008Q4

REPORT INFORMATION
  Report Type: 
  Country: None (occurrence: None)
  Receive Date: 20081030
  Receipt Date: 20081023
  Transmission Date: 20090506
  Serious: Yes (Hospitalization)
  Sender: FDA-Public Use
  Company Number: JP-WATSON-2008-06326

PATIENT
  Age: 11 Year
  Sex: Female

DRUGS (2)
  1. AMPICILLIN SODIUM (WATSON LABORATORIES) [Suspect]
     Indication: MENINGITIS BACTERIAL
     Dosage: 0.5 G, Q6H
     Route: 065
     Dates: start: 20010901
  2. CEFOTAXIME SODIUM [Suspect]
     Indication: MENINGITIS BACTERIAL
     Dosage: 1.0 G, Q6H
     Route: 065
     Dates: start: 20010901

REACTIONS (1)
  - DRUG RASH WITH EOSINOPHILIA AND SYSTEMIC SYMPTOMS [None]
